FAERS Safety Report 24801090 (Version 1)
Quarter: 2025Q1

REPORT INFORMATION
  Report Type: Spontaneous
  Country: CN (occurrence: CN)
  Receive Date: 20250102
  Receipt Date: 20250102
  Transmission Date: 20250409
  Serious: Yes (Hospitalization)
  Sender: PFIZER
  Company Number: CN-PFIZER INC-PV202400169986

PATIENT
  Age: 61 Year
  Sex: Male

DRUGS (2)
  1. IRINOTECAN HYDROCHLORIDE [Suspect]
     Active Substance: IRINOTECAN HYDROCHLORIDE
     Indication: Colon cancer
     Dosage: 0.36 G, 1X/DAY
     Route: 041
     Dates: start: 20241219, end: 20241219
  2. SODIUM CHLORIDE [Concomitant]
     Active Substance: SODIUM CHLORIDE
     Dates: start: 20241219, end: 20241219

REACTIONS (1)
  - Hiccups [Recovering/Resolving]

NARRATIVE: CASE EVENT DATE: 20241219
